FAERS Safety Report 16809671 (Version 1)
Quarter: 2019Q4

REPORT INFORMATION
  Report Type: Spontaneous
  Country: US (occurrence: US)
  Receive Date: 20190915
  Receipt Date: 20190915
  Transmission Date: 20200122
  Serious: Yes (Hospitalization, Disabling)
  Sender: FDA-Public Use
  Company Number: None

PATIENT
  Age: 30 Year
  Sex: Female

DRUGS (1)
  1. DOTAREM [Suspect]
     Active Substance: GADOTERATE MEGLUMINE

REACTIONS (10)
  - Muscle contractions involuntary [None]
  - Visual impairment [None]
  - Small fibre neuropathy [None]
  - Headache [None]
  - Malaise [None]
  - Night sweats [None]
  - Cardiac disorder [None]
  - Skin burning sensation [None]
  - Autonomic failure syndrome [None]
  - Neuralgia [None]

NARRATIVE: CASE EVENT DATE: 20190323
